FAERS Safety Report 8373826-X (Version None)
Quarter: 2012Q2

REPORT INFORMATION
  Report Type: 
  Country: None (occurrence: None)
  Receive Date: 20120521
  Receipt Date: 20120516
  Transmission Date: 20120825
  Serious: Yes (Hospitalization)
  Sender: FDA-Public Use
  Company Number: US-ACTELION-A-NJ2012-59717

PATIENT

DRUGS (14)
  1. VENTAVIS [Suspect]
     Indication: PULMONARY ARTERIAL HYPERTENSION
     Dosage: 5 MCG, QID
     Route: 055
     Dates: start: 20111122
  2. METOLAZONE [Concomitant]
  3. COREG [Concomitant]
  4. BUMEX [Concomitant]
  5. TRAMADOL HYDROCHLORIDE [Concomitant]
  6. XALATAN [Concomitant]
  7. ALLOPURINOL [Concomitant]
  8. TRACLEER [Suspect]
     Indication: PULMONARY ARTERIAL HYPERTENSION
     Dosage: UNK
     Route: 048
     Dates: start: 20110103
  9. OXYGEN [Concomitant]
  10. GLIMEPIRIDE [Concomitant]
  11. BRIMONIDINE TARTRATE [Concomitant]
  12. COLCRYS [Concomitant]
  13. POTASSIUM CHLORIDE [Concomitant]
  14. JANUVIA [Concomitant]

REACTIONS (9)
  - HYPOTENSION [None]
  - PALPITATIONS [None]
  - COUGH [None]
  - STOMATITIS [None]
  - PARAESTHESIA [None]
  - SINUS TACHYCARDIA [None]
  - THROAT IRRITATION [None]
  - FATIGUE [None]
  - BLOOD GLUCOSE DECREASED [None]
